FAERS Safety Report 7261702-5 (Version None)
Quarter: 2011Q1

REPORT INFORMATION
  Report Type: 
  Country: None (occurrence: None)
  Receive Date: 20110124
  Receipt Date: 20110124
  Transmission Date: 20110831
  Serious: Yes (Disabling)
  Sender: FDA-Public Use
  Company Number: None

PATIENT
  Sex: Female
  Weight: 54.4316 kg

DRUGS (1)
  1. TRIAD STERILE ALCOHOL PREP PAD 70% V/V TRIAD GROUP INC [Suspect]
     Dates: start: 20070701, end: 20110107

REACTIONS (1)
  - PRODUCT CONTAMINATION MICROBIAL [None]
